FAERS Safety Report 10298613 (Version 4)
Quarter: 2014Q4

REPORT INFORMATION
  Report Type: Report from Study
  Country: CZ (occurrence: CZ)
  Receive Date: 20140711
  Receipt Date: 20141118
  Transmission Date: 20150528
  Serious: Yes (Hospitalization)
  Sender: FDA-Public Use
  Company Number: CZ-ASTELLAS-2014EU009476

PATIENT
  Age: 81 Year
  Sex: Female
  Weight: 57 kg

DRUGS (6)
  1. SOLIFENACIN-MIRABEGRON [Suspect]
     Active Substance: MIRABEGRON\SOLIFENACIN
     Indication: HYPERTONIC BLADDER
     Dosage: UNK UNK, ONCE DAILY
     Route: 048
     Dates: start: 20140603
  2. SOLIFENACIN [Suspect]
     Active Substance: SOLIFENACIN
     Indication: HYPERTONIC BLADDER
     Route: 048
     Dates: start: 20140503, end: 20140602
  3. HELICID                            /00661201/ [Concomitant]
     Indication: ULCER
     Route: 048
     Dates: start: 20140704, end: 20140711
  4. PREDNISON [Concomitant]
     Active Substance: PREDNISONE
     Indication: OEDEMA
     Route: 048
     Dates: start: 20140704, end: 20140711
  5. KALIUM CHLORATUM [Concomitant]
     Active Substance: POTASSIUM CHLORIDE
     Indication: HYPOKALAEMIA
     Route: 048
     Dates: start: 20140714
  6. HERPESIN                           /00587301/ [Concomitant]
     Indication: PROPHYLAXIS
     Route: 042
     Dates: start: 20140704, end: 20140711

REACTIONS (1)
  - Herpes zoster meningoencephalitis [Recovered/Resolved]

NARRATIVE: CASE EVENT DATE: 20140704
